FAERS Safety Report 6870800-7 (Version None)
Quarter: 2010Q3

REPORT INFORMATION
  Report Type: 
  Country: None (occurrence: None)
  Receive Date: 20100723
  Receipt Date: 20100712
  Transmission Date: 20110219
  Serious: Yes (Hospitalization)
  Sender: FDA-Public Use
  Company Number: US-JNJFOC-20100704522

PATIENT
  Sex: Male
  Weight: 74.39 kg

DRUGS (7)
  1. REMICADE [Suspect]
     Indication: CROHN'S DISEASE
     Route: 042
  2. REMICADE [Suspect]
     Dosage: 6 INFUSIONS
     Route: 042
  3. MERCAPTOPURINE [Suspect]
     Indication: CROHN'S DISEASE
     Route: 065
  4. HUMIRA [Suspect]
     Indication: CROHN'S DISEASE
     Route: 065
  5. STEROIDS NOS [Concomitant]
     Indication: PREMEDICATION
  6. ANTIHISTAMINE [Concomitant]
     Indication: PREMEDICATION
  7. ACETAMINOPHEN [Concomitant]
     Indication: PREMEDICATION

REACTIONS (1)
  - RENAL CELL CARCINOMA [None]
